APPROVED DRUG PRODUCT: RANITIDINE HYDROCHLORIDE
Active Ingredient: RANITIDINE HYDROCHLORIDE
Strength: EQ 150MG BASE
Dosage Form/Route: TABLET;ORAL
Application: A210243 | Product #002
Applicant: GRANULES INDIA LTD
Approved: Aug 20, 2018 | RLD: No | RS: No | Type: DISCN